FAERS Safety Report 4822432-X (Version None)
Quarter: 2005Q4

REPORT INFORMATION
  Report Type: 
  Country: None (occurrence: None)
  Receive Date: 20051103
  Receipt Date: 20051103
  Transmission Date: 20060501
  Serious: No
  Sender: FDA-Public Use
  Company Number: None

PATIENT
  Sex: Female
  Weight: 58.9676 kg

DRUGS (1)
  1. ZICAM COLD REMEDY NASAL GEL ZINCUM GLUCONICUM 2X MATRIXX INITIATIVE IN [Suspect]
     Dosage: NONE TAKEN

REACTIONS (1)
  - PHARMACEUTICAL PRODUCT COMPLAINT [None]
